FAERS Safety Report 5823344-5 (Version None)
Quarter: 2008Q3

REPORT INFORMATION
  Report Type: 
  Country: None (occurrence: None)
  Receive Date: 20080725
  Receipt Date: 20080715
  Transmission Date: 20090109
  Serious: Yes (Hospitalization)
  Sender: FDA-Public Use
  Company Number: FR-SANOFI-SYNTHELABO-A02200802161

PATIENT
  Sex: Male

DRUGS (2)
  1. ENALAPRIL MALEATE [Concomitant]
     Dosage: UNK
     Route: 065
  2. XATRAL [Suspect]
     Indication: BENIGN PROSTATIC HYPERPLASIA
     Route: 048
     Dates: start: 20080310, end: 20080410

REACTIONS (2)
  - REBOUND EFFECT [None]
  - URINARY RETENTION [None]
